FAERS Safety Report 5340118-2 (Version None)
Quarter: 2007Q2

REPORT INFORMATION
  Report Type: 
  Country: None (occurrence: None)
  Receive Date: 20070525
  Receipt Date: 20070525
  Transmission Date: 20071010
  Serious: Yes (Hospitalization)
  Sender: FDA-Public Use
  Company Number: None

PATIENT
  Age: 91 Year
  Sex: Female
  Weight: 39 kg

DRUGS (8)
  1. MOXIFLOXACIN HCL [Suspect]
     Indication: UPPER RESPIRATORY TRACT INFECTION
     Dosage: PO
     Route: 048
     Dates: start: 20061227, end: 20070105
  2. ASPIRIN [Concomitant]
  3. LOPRESSOR [Concomitant]
  4. LEVOTHYROXINE SODIUM [Concomitant]
  5. ATARAX [Concomitant]
  6. HC CREAM [Concomitant]
  7. VALSARTAN/HCTZ [Concomitant]
  8. NORVASC [Concomitant]

REACTIONS (3)
  - CONFUSIONAL STATE [None]
  - DEMENTIA [None]
  - RASH [None]
